FAERS Safety Report 7810201-8 (Version None)
Quarter: 2011Q4

REPORT INFORMATION
  Report Type: 
  Country: None (occurrence: None)
  Receive Date: 20111012
  Receipt Date: 20110929
  Transmission Date: 20120403
  Serious: Yes (Hospitalization)
  Sender: FDA-Public Use
  Company Number: FR-MYLANLABS-2011S1020693

PATIENT
  Age: 63 Year
  Sex: Female

DRUGS (1)
  1. METFORMIN HYDROCHLORIDE [Suspect]
     Dosage: 3000MG DAILY
     Route: 065

REACTIONS (4)
  - RENAL FAILURE ACUTE [None]
  - LACTIC ACIDOSIS [None]
  - RESPIRATORY DISORDER [None]
  - CARDIOVASCULAR DISORDER [None]
